FAERS Safety Report 9514581 (Version 1)
Quarter: 2013Q3

REPORT INFORMATION
  Report Type: Spontaneous
  Country: IR (occurrence: None)
  Receive Date: 20130906
  Receipt Date: 20130906
  Transmission Date: 20140515
  Serious: Yes (Other)
  Sender: FDA-Public Use
  Company Number: 1882391

PATIENT
  Age: 27 Year
  Sex: Male

DRUGS (2)
  1. IRINOTECAN HYDROCHLORIDE [Suspect]
     Indication: COLON CANCER
  2. OXALIPLATIN [Suspect]
     Indication: COLON CANCER

REACTIONS (5)
  - Metastases to lung [None]
  - No therapeutic response [None]
  - Chronic myeloid leukaemia [None]
  - Colon cancer metastatic [None]
  - Malignant neoplasm progression [None]
